FAERS Safety Report 22197099 (Version 1)
Quarter: 2023Q2

REPORT INFORMATION
  Report Type: Other
  Country: US (occurrence: US)
  Receive Date: 20230411
  Receipt Date: 20230411
  Transmission Date: 20230721
  Serious: Yes (Death)
  Sender: FDA-Public Use
  Company Number: US-ALVOGEN-2023089677

PATIENT
  Age: 41 Year
  Sex: Female

DRUGS (11)
  1. FLUOXETINE [Suspect]
     Active Substance: FLUOXETINE HYDROCHLORIDE
     Indication: Suicide attempt
  2. LORAZEPAM [Suspect]
     Active Substance: LORAZEPAM
     Indication: Suicide attempt
  3. NORTRIPTYLINE [Suspect]
     Active Substance: NORTRIPTYLINE
     Indication: Suicide attempt
  4. QUETIAPINE [Suspect]
     Active Substance: QUETIAPINE
     Indication: Suicide attempt
  5. SUVOREXANT [Suspect]
     Active Substance: SUVOREXANT
     Indication: Suicide attempt
  6. TOPIRAMATE [Suspect]
     Active Substance: TOPIRAMATE
     Indication: Suicide attempt
  7. OLANZAPINE [Suspect]
     Active Substance: OLANZAPINE
     Indication: Suicide attempt
  8. BUSPIRONE [Suspect]
     Active Substance: BUSPIRONE HYDROCHLORIDE
     Indication: Suicide attempt
  9. VILAZODONE [Suspect]
     Active Substance: VILAZODONE
     Indication: Suicide attempt
  10. LINACLOTIDE [Suspect]
     Active Substance: LINACLOTIDE
     Indication: Suicide attempt
  11. LUBIPROSTONE [Suspect]
     Active Substance: LUBIPROSTONE
     Indication: Suicide attempt

REACTIONS (3)
  - Cardiac arrest [Fatal]
  - Respiratory arrest [Fatal]
  - Completed suicide [Fatal]
